FAERS Safety Report 7364056-9 (Version None)
Quarter: 2011Q1

REPORT INFORMATION
  Report Type: 
  Country: None (occurrence: None)
  Receive Date: 20110321
  Receipt Date: 20110308
  Transmission Date: 20110831
  Serious: Yes (Other)
  Sender: FDA-Public Use
  Company Number: PHHY2011NL14650

PATIENT
  Sex: Male
  Weight: 80 kg

DRUGS (4)
  1. DOXAZOSIN [Concomitant]
     Dosage: 8 MG, QD
  2. METOPROLOL SUCCINATE [Concomitant]
     Dosage: 100 MG, QD
  3. ALFUZOSIN [Concomitant]
     Dosage: 10 MG, QD
  4. DIOVAN [Suspect]
     Indication: HYPERTENSION
     Dosage: 320 MG, QD
     Dates: start: 20100319

REACTIONS (2)
  - EAR DISORDER [None]
  - DEAFNESS [None]
